FAERS Safety Report 21444071 (Version 2)
Quarter: 2022Q4

REPORT INFORMATION
  Report Type: Spontaneous
  Country: US (occurrence: US)
  Receive Date: 20221012
  Receipt Date: 20221124
  Transmission Date: 20230112
  Serious: Yes (Other)
  Sender: FDA-Public Use
  Company Number: US-JNJFOC-20221005771

PATIENT
  Age: 35 Year
  Sex: Male

DRUGS (2)
  1. UPTRAVI [Suspect]
     Active Substance: SELEXIPAG
     Indication: Pulmonary hypertension
     Route: 048
     Dates: start: 202107
  2. AMBRISENTAN [Suspect]
     Active Substance: AMBRISENTAN
     Indication: Pulmonary hypertension
     Route: 048
     Dates: start: 20110506

REACTIONS (6)
  - Pericardial effusion [Unknown]
  - Headache [Unknown]
  - Flushing [Unknown]
  - Nausea [Unknown]
  - Pain in jaw [Unknown]
  - Dyspnoea [Unknown]
